FAERS Safety Report 6398672-8 (Version None)
Quarter: 2009Q4

REPORT INFORMATION
  Report Type: 
  Country: None (occurrence: None)
  Receive Date: 20091013
  Receipt Date: 20091008
  Transmission Date: 20100525
  Serious: Yes (Hospitalization)
  Sender: FDA-Public Use
  Company Number: GB-B.I. PHARMACEUTICALS,INC./RIDGEFIELD-2009-UK-00874UK

PATIENT
  Sex: Female
  Weight: 40.7 kg

DRUGS (24)
  1. CATAPRES AMPOULES (0015/5008R) [Suspect]
     Indication: PAIN
     Dosage: 159.87 MCG/ML
     Route: 037
     Dates: start: 20090527
  2. BUPIVACAINE [Suspect]
     Indication: PAIN
     Dosage: 11.990 MG/ML
     Route: 037
     Dates: start: 20090527
  3. HYDROMORPHONE [Suspect]
     Indication: PAIN
     Dosage: 7.993MG/ML
     Route: 037
     Dates: start: 20090527
  4. ZICONOTIDE [Suspect]
     Indication: PAIN
  5. FLUOXETINE [Concomitant]
     Indication: DEPRESSION
     Dosage: 20 MG
     Route: 048
     Dates: start: 20010101
  6. AMITRIPTYLINE [Concomitant]
     Indication: PAIN
     Dosage: 10 MG
     Route: 048
     Dates: start: 19840101
  7. ONDANSETRON [Concomitant]
     Indication: NAUSEA
     Dosage: 4MG QDS
     Route: 048
     Dates: start: 19960101
  8. CODEINE PHOSPHATE [Concomitant]
     Indication: PAIN
     Dosage: 30MG QDS
     Route: 048
     Dates: start: 19970101
  9. CHLORPHENIRAMINE MALEATE [Concomitant]
     Indication: HYPERSENSITIVITY
     Dosage: 40 MGS TDS
     Route: 048
     Dates: start: 19961001
  10. DOCUSATE [Concomitant]
     Indication: LAXATIVE SUPPORTIVE CARE
     Dosage: 100MG BD
     Route: 048
     Dates: start: 19960101
  11. FOLIC ACID [Concomitant]
     Indication: ANAEMIA
     Dosage: 5 MG
     Route: 048
     Dates: start: 20010101
  12. TIOTROPIUM [Concomitant]
     Indication: ASTHMA
     Dosage: 18 MCG
     Route: 055
     Dates: start: 19870101
  13. GABAPENTIN [Concomitant]
     Indication: PAIN
     Dosage: 300 MG
     Route: 048
     Dates: start: 20060101
  14. DICLOFENAC [Concomitant]
     Indication: PAIN
     Dosage: 75MG BD
     Route: 048
     Dates: start: 20060101
  15. QUININE SULPHATE [Concomitant]
     Indication: MUSCLE SPASMS
     Dosage: 200 MG
     Route: 048
     Dates: start: 19970101
  16. LANSOPRAZOLE [Concomitant]
     Indication: GASTROOESOPHAGEAL REFLUX DISEASE
     Dosage: 30 MG
     Route: 048
     Dates: start: 19960701
  17. SUCRALFATE [Concomitant]
     Indication: GASTRITIS PROPHYLAXIS
     Dosage: 1G QDS
     Route: 048
     Dates: start: 19940101
  18. ORAMORPH SR [Concomitant]
     Indication: PAIN
     Dosage: 5ML PRN
     Route: 048
     Dates: start: 20000101
  19. ALBUTEROL [Concomitant]
     Indication: ASTHMA
     Dosage: 100MG PRN
     Route: 055
     Dates: start: 19870101
  20. CYCLIZINE [Concomitant]
     Indication: NAUSEA
     Dosage: 150MG
     Route: 048
     Dates: start: 20010101
  21. CLOTRIMAZOLE [Concomitant]
     Indication: SKIN INFECTION
     Dosage: 5G PRN TOPICAL
     Dates: start: 19970101
  22. FUROSEMIDE [Concomitant]
     Indication: DIURETIC THERAPY
     Dosage: 80 MG
     Route: 048
     Dates: start: 19970101
  23. BUCLESONIDE POWDER INHALER [Concomitant]
     Indication: ASTHMA
     Dosage: 100MG PRN
     Route: 055
     Dates: start: 19870101
  24. HYDROXOCOBALOMIN [Concomitant]
     Indication: ANAEMIA
     Dosage: 1MG 3 MONTHLY
     Route: 055
     Dates: start: 20060101

REACTIONS (1)
  - MALNUTRITION [None]
